FAERS Safety Report 8433064 (Version 8)
Quarter: 2014Q2

REPORT INFORMATION
  Report Type: Report from Study
  Country: US (occurrence: US)
  Receive Date: 20120229
  Receipt Date: 20140424
  Transmission Date: 20141212
  Serious: Yes (Congenital Anomaly)
  Sender: FDA-Public Use
  Company Number: US-ROCHE-1041174

PATIENT
  Sex: Male
  Weight: 3.63 kg

DRUGS (4)
  1. OMALIZUMAB [Suspect]
     Indication: PRODUCT USED FOR UNKNOWN INDICATION
     Dosage: LAST DOSE 150 MG IN 02 TRIMESTER
     Route: 064
     Dates: start: 200901
  2. TYLENOL [Concomitant]
     Indication: TEETHING
  3. BENADRYL (UNITED STATES) [Concomitant]
  4. ZYRTEC [Concomitant]
     Indication: RHINORRHOEA

REACTIONS (5)
  - Pyelocaliectasis [Recovered/Resolved]
  - Viral tonsillitis [Unknown]
  - Respiratory syncytial virus infection [Unknown]
  - Ear infection [Unknown]
  - Maternal exposure timing unspecified [Unknown]
